FAERS Safety Report 5377773-7 (Version None)
Quarter: 2007Q3

REPORT INFORMATION
  Report Type: 
  Country: None (occurrence: None)
  Receive Date: 20070703
  Receipt Date: 20070621
  Transmission Date: 20080115
  Serious: Yes (Other)
  Sender: FDA-Public Use
  Company Number: US-ELI_LILLY_AND_COMPANY-US200706004925

PATIENT
  Sex: Female

DRUGS (1)
  1. EVISTA [Suspect]
     Indication: OSTEOPOROSIS
     Dosage: 60 MG, UNK
     Route: 048
     Dates: start: 20030101

REACTIONS (5)
  - ENDODONTIC PROCEDURE [None]
  - FALL [None]
  - LOSS OF CONSCIOUSNESS [None]
  - OSTEITIS DEFORMANS [None]
  - SPINAL DISORDER [None]
